FAERS Safety Report 17011838 (Version 1)
Quarter: 2019Q4

REPORT INFORMATION
  Report Type: Spontaneous
  Country: US (occurrence: US)
  Receive Date: 20191108
  Receipt Date: 20191108
  Transmission Date: 20200122
  Serious: Yes (Other)
  Sender: FDA-Public Use
  Company Number: US-TEVA-2019-US-1133865

PATIENT
  Age: 30 Year
  Sex: Male

DRUGS (1)
  1. COPAXONE [Suspect]
     Active Substance: GLATIRAMER ACETATE
     Indication: RELAPSING-REMITTING MULTIPLE SCLEROSIS
     Dosage: FORM STRENGTH: UNKNOWN
     Route: 065

REACTIONS (9)
  - Multiple sclerosis [Unknown]
  - Sensory disturbance [Unknown]
  - Multiple sclerosis relapse [Unknown]
  - Band sensation [Unknown]
  - Hypoaesthesia [Unknown]
  - Malaise [Unknown]
  - Fatigue [Unknown]
  - Dysgraphia [Unknown]
  - Eye disorder [Unknown]
